FAERS Safety Report 6552675-9 (Version None)
Quarter: 2010Q1

REPORT INFORMATION
  Report Type: 
  Country: None (occurrence: None)
  Receive Date: 20100126
  Receipt Date: 20100118
  Transmission Date: 20100710
  Serious: Yes (Hospitalization)
  Sender: FDA-Public Use
  Company Number: B0626582A

PATIENT
  Sex: Male
  Weight: 3.5 kg

DRUGS (2)
  1. VENTOLIN [Suspect]
  2. SUBUTEX [Suspect]

REACTIONS (1)
  - WITHDRAWAL SYNDROME [None]
